FAERS Safety Report 12906158 (Version 1)
Quarter: 2016Q4

REPORT INFORMATION
  Report Type: Spontaneous
  Country: US (occurrence: US)
  Receive Date: 20161101
  Receipt Date: 20161101
  Transmission Date: 20170207
  Serious: No
  Sender: FDA-Public Use
  Company Number: None

PATIENT
  Age: 53 Year
  Sex: Female

DRUGS (1)
  1. BOTOX [Suspect]
     Active Substance: ONABOTULINUMTOXINA
     Indication: MIGRAINE
     Dosage: 200 UNITS EVERY 3 MONTHS INTRAMUSCULAR
     Route: 030
     Dates: start: 20150428

REACTIONS (2)
  - Alopecia [None]
  - Injection site reaction [None]

NARRATIVE: CASE EVENT DATE: 20160701
